FAERS Safety Report 10368388 (Version 1)
Quarter: 2014Q3

REPORT INFORMATION
  Report Type: Spontaneous
  Country: US (occurrence: None)
  Receive Date: 20140806
  Receipt Date: 20140806
  Transmission Date: 20150326
  Serious: Yes (Hospitalization)
  Sender: FDA-Public Use
  Company Number: None

PATIENT
  Age: 64 Year
  Sex: Male

DRUGS (1)
  1. IMBRUVICA [Suspect]
     Active Substance: IBRUTINIB
     Indication: MANTLE CELL LYMPHOMA
     Route: 048
     Dates: start: 20140711, end: 20140718

REACTIONS (5)
  - Musculoskeletal stiffness [None]
  - Synovial cyst [None]
  - Heart rate increased [None]
  - Blood potassium increased [None]
  - Peripheral swelling [None]

NARRATIVE: CASE EVENT DATE: 20140805
